FAERS Safety Report 4501087-8 (Version None)
Quarter: 2004Q4

REPORT INFORMATION
  Report Type: 
  Country: None (occurrence: None)
  Receive Date: 20041115
  Receipt Date: 20040923
  Transmission Date: 20050328
  Serious: Yes (Hospitalization)
  Sender: FDA-Public Use
  Company Number: CN-NOVOPROD-239491

PATIENT
  Age: 45 Year
  Sex: Female
  Weight: 47 kg

DRUGS (9)
  1. NOVOLIN R [Suspect]
     Indication: DIABETES MELLITUS INSULIN-DEPENDENT
     Dates: start: 19970701
  2. NOVOLIN R [Suspect]
     Dosage: 34 IU, QD
     Route: 058
     Dates: start: 20040701
  3. ASPIRIN [Concomitant]
  4. THIAMINE HCL [Concomitant]
  5. MERISLON [Concomitant]
  6. CYANOCOBALAMIN [Concomitant]
  7. ALPRAZOLAM [Concomitant]
  8. SOMAZINA [Concomitant]
  9. METFORMIN [Concomitant]

REACTIONS (4)
  - BLOOD GLUCOSE INCREASED [None]
  - HYPOGLYCAEMIA [None]
  - PHARMACEUTICAL PRODUCT COMPLAINT [None]
  - TRANSIENT ISCHAEMIC ATTACK [None]
